FAERS Safety Report 9512462 (Version 1)
Quarter: 2013Q1

REPORT INFORMATION
  Report Type: Spontaneous
  Country: US (occurrence: None)
  Receive Date: 20130305
  Receipt Date: 20130305
  Transmission Date: 20140127
  Serious: Yes (Other)
  Sender: FDA-Public Use
  Company Number: 163-21880-12103167

PATIENT
  Age: 74 Year
  Sex: Female
  Weight: 67.13 kg

DRUGS (14)
  1. REVLIMID (LENALIDOMIDE) (CAPSULES) [Suspect]
     Indication: PLASMA CELL MYELOMA
     Dosage: 21 IN 28 D
     Route: 048
     Dates: start: 20111209, end: 201210
  2. WARFARIN. (WARFARIN) (UNKNOWN) [Concomitant]
  3. LEXAPRO (ESCITALPRAM OXALATE) (UNKNOWN) [Concomitant]
  4. OXYBUTYNIN (OXYBUTYNIN) (UNKNOWN) [Concomitant]
  5. OMEPRAZOLE (OMEPRAZOLE) (UNKNOWN) [Concomitant]
  6. PRAMIPEXOLE (PRAMIPEXOLE) (UNKNOWN) [Concomitant]
  7. HYDROMORPHONE (HYDROMORPHONE) (UNKNOWN) (HYDROMORPHONE) [Concomitant]
  8. ASPIRIN (ACETYLSALICYLIC ACID) (UNKNOWN) (ACETYLSALICYLIC ACID) [Concomitant]
  9. DECADRON [Concomitant]
  10. MULTIVITAMINS (MULTIVITAMINS) (UNKNOWN) [Concomitant]
  11. CLARITHROMYCIN (CLARITHROMYCIN) (UNKNOWN) [Concomitant]
  12. LASIX (FUROSEMIDE) (UNKNOWN) [Concomitant]
  13. OXYCONTIN (OXYCODONE HYCHLORIDE) (UNKNOWN) [Concomitant]
  14. ZOMETA (ZOLEDRONIC ACID) (UNKNOWN) [Concomitant]

REACTIONS (3)
  - Thrombosis [None]
  - Plasma cell myeloma [None]
  - Drug ineffective [None]
